FAERS Safety Report 4816003-9 (Version None)
Quarter: 2005Q4

REPORT INFORMATION
  Report Type: 
  Country: None (occurrence: None)
  Receive Date: 20051026
  Receipt Date: 20051014
  Transmission Date: 20060501
  Serious: Yes (Other)
  Sender: FDA-Public Use
  Company Number: 2005130970

PATIENT
  Sex: Female
  Weight: 58.9676 kg

DRUGS (9)
  1. LIPITOR [Suspect]
     Indication: HYPERLIPIDAEMIA
     Dosage: 10 MG
  2. ALL OTHER THERAPEUTIC PRODUCTS (ALL OTHER THERAPEUTIC PRODUCTS) [Suspect]
     Indication: HYPERLIPIDAEMIA
  3. TEVEN (EPROSARTAN) [Concomitant]
  4. ACETYLSALICYLIC ACID (ACETYLSALICYCLIC ACID) [Concomitant]
  5. PREVACID [Concomitant]
  6. NORVASC [Concomitant]
  7. ATENOLOL [Concomitant]
  8. IRON (IRON) [Concomitant]
  9. ICAPS (MINERALS NOS, VITAMINS NOS) [Concomitant]

REACTIONS (4)
  - ARTHRALGIA [None]
  - CONSTIPATION [None]
  - MUSCLE SPASMS [None]
  - MYALGIA [None]
